FAERS Safety Report 6602897-3 (Version None)
Quarter: 2010Q1

REPORT INFORMATION
  Report Type: 
  Country: None (occurrence: None)
  Receive Date: 20100226
  Receipt Date: 20100212
  Transmission Date: 20100710
  Serious: No
  Sender: FDA-Public Use
  Company Number: US-ELI_LILLY_AND_COMPANY-US200908004426

PATIENT
  Sex: Female

DRUGS (8)
  1. FORTEO [Suspect]
     Indication: OSTEOPOROSIS
     Dosage: 20 UG, DAILY (1/D)
     Dates: start: 20080101, end: 20090101
  2. FORTEO [Suspect]
     Dosage: 20 UG, DAILY (1/D)
     Dates: start: 20100112
  3. REFLEX /00684602/ [Concomitant]
     Dosage: 10 MG, UNK
  4. REQUIP [Concomitant]
     Dosage: 2 MG, UNK
  5. PERCOCET [Concomitant]
     Dosage: 7.5 MG/325 MG, UNK
  6. CYMBALTA [Concomitant]
     Dosage: 60 MG, UNK
  7. LUNESTA [Concomitant]
     Dosage: 3 MG, UNK
  8. VITAMIN B12 /00056201/ [Concomitant]
     Dosage: UNK, MONTHLY (1/M)

REACTIONS (4)
  - FALL [None]
  - MALAISE [None]
  - PAIN [None]
  - SINUSITIS [None]
